FAERS Safety Report 7234124-0 (Version None)
Quarter: 2010Q4

REPORT INFORMATION
  Report Type: 
  Country: None (occurrence: None)
  Receive Date: 20101130
  Receipt Date: 20100929
  Transmission Date: 20110411
  Serious: Yes (Hospitalization, Other)
  Sender: FDA-Public Use
  Company Number: US201002002097

PATIENT
  Sex: Female
  Weight: 95.2 kg

DRUGS (5)
  1. BYETTA [Suspect]
     Dates: start: 20050901, end: 20060422
  2. EXENATIDE PEN, DISPOSABLE DEVICE (EXENATIDE PEN) [Concomitant]
  3. METFORMIN HCL [Concomitant]
  4. LIPITOR [Concomitant]
  5. WELLBUTRIN [Concomitant]

REACTIONS (1)
  - PANCREATITIS [None]
